FAERS Safety Report 5649527-5 (Version None)
Quarter: 2008Q1

REPORT INFORMATION
  Report Type: 
  Country: None (occurrence: None)
  Receive Date: 20080131
  Receipt Date: 20071102
  Transmission Date: 20080703
  Serious: No
  Sender: FDA-Public Use
  Company Number: US200705003380

PATIENT
  Age: 48 Year
  Sex: Male
  Weight: 226.8 kg

DRUGS (8)
  1. BYETTA [Suspect]
     Indication: TYPE 2 DIABETES MELLITUS
     Dosage: 5 UG, 2/D, SUBCUTANEOUS
     Route: 058
     Dates: start: 20070331, end: 20070401
  2. BYETTA [Suspect]
     Dosage: 10 UG, 2/D, SUBCUTANEOUS
     Route: 058
     Dates: start: 20070401
  3. AVANDIA [Concomitant]
  4. SOMATROPIN (SOMATROPIN) [Concomitant]
  5. LEVOTHYROXINE SODIUM [Concomitant]
  6. ENALAPRIL MALEATE [Concomitant]
  7. HYDROCHLOROTHIAZIDE [Concomitant]
  8. METFORMIN HCL [Concomitant]

REACTIONS (20)
  - BACK PAIN [None]
  - BLOOD GLUCOSE DECREASED [None]
  - BLOOD GLUCOSE INCREASED [None]
  - CHROMATURIA [None]
  - CONFUSIONAL STATE [None]
  - DECREASED APPETITE [None]
  - DYSURIA [None]
  - HEADACHE [None]
  - HEART RATE ABNORMAL [None]
  - HEART RATE INCREASED [None]
  - HYPERHIDROSIS [None]
  - HYPOAESTHESIA [None]
  - INFECTION [None]
  - INJECTION SITE PRURITUS [None]
  - MUSCULOSKELETAL STIFFNESS [None]
  - NODULE [None]
  - RENAL DISORDER [None]
  - URINE ANALYSIS ABNORMAL [None]
  - VOMITING [None]
  - WEIGHT DECREASED [None]
